FAERS Safety Report 7468905-5 (Version None)
Quarter: 2011Q2

REPORT INFORMATION
  Report Type: 
  Country: None (occurrence: None)
  Receive Date: 20110510
  Receipt Date: 20110503
  Transmission Date: 20111010
  Serious: No
  Sender: FDA-Public Use
  Company Number: US-BIOGENIDEC-2011BI016932

PATIENT
  Age: 37 Year
  Sex: Female

DRUGS (1)
  1. TYSABRI [Suspect]
     Indication: MULTIPLE SCLEROSIS
     Route: 042
     Dates: start: 20090330

REACTIONS (7)
  - NASOPHARYNGITIS [None]
  - PARAESTHESIA [None]
  - BACK PAIN [None]
  - MUSCULOSKELETAL DISORDER [None]
  - DRUG EFFECT DECREASED [None]
  - FATIGUE [None]
  - MUSCULOSKELETAL STIFFNESS [None]
